FAERS Safety Report 9402589 (Version 2)
Quarter: 2013Q3

REPORT INFORMATION
  Report Type: Spontaneous
  Country: DE (occurrence: FR)
  Receive Date: 20130716
  Receipt Date: 20130909
  Transmission Date: 20140515
  Serious: Yes (Life-Threatening)
  Sender: FDA-Public Use
  Company Number: FR-FRI-1000046686

PATIENT
  Age: 82 Year
  Sex: Male

DRUGS (7)
  1. MEMANTINE [Suspect]
     Indication: COGNITIVE DISORDER
     Dosage: 20 MG
     Route: 048
  2. TAHOR [Concomitant]
  3. GLUCOPHAGE [Concomitant]
  4. INEXIUM [Concomitant]
  5. VASTAREL [Concomitant]
  6. RAMIPRIL [Concomitant]
  7. PLAVIX [Concomitant]

REACTIONS (3)
  - Pulmonary embolism [Recovering/Resolving]
  - Cor pulmonale acute [Recovering/Resolving]
  - Venous thrombosis [Recovering/Resolving]
